FAERS Safety Report 21218555 (Version 1)
Quarter: 2022Q3

REPORT INFORMATION
  Report Type: Report from Study
  Country: US (occurrence: US)
  Receive Date: 20220816
  Receipt Date: 20220816
  Transmission Date: 20221027
  Serious: Yes (Hospitalization)
  Sender: FDA-Public Use
  Company Number: US-BAYER-2022A065906

PATIENT
  Age: 43 Year
  Sex: Female
  Weight: 172.34 kg

DRUGS (5)
  1. ADEMPAS [Suspect]
     Active Substance: RIOCIGUAT
     Indication: Pulmonary arterial hypertension
     Dosage: UNK
     Dates: start: 20210702
  2. ADEMPAS [Suspect]
     Active Substance: RIOCIGUAT
     Indication: Pulmonary arterial hypertension
     Dosage: 2 MG, TID
     Route: 048
  3. ADEMPAS [Suspect]
     Active Substance: RIOCIGUAT
     Indication: Pulmonary arterial hypertension
     Dosage: 1.5 MG, TID
     Route: 048
  4. OPSUMIT [Concomitant]
     Active Substance: MACITENTAN
     Dosage: UNK
  5. DILTIAZEM [Concomitant]
     Active Substance: DILTIAZEM
     Dosage: UNK

REACTIONS (7)
  - Fluid retention [None]
  - Dyspnoea [None]
  - Dyspnoea [None]
  - Fluid retention [None]
  - Carbon dioxide increased [None]
  - Lung disorder [None]
  - Rehabilitation therapy [None]

NARRATIVE: CASE EVENT DATE: 20220401
